FAERS Safety Report 16679312 (Version 1)
Quarter: 2019Q3

REPORT INFORMATION
  Report Type: Spontaneous
  Country: IN (occurrence: IN)
  Receive Date: 20190807
  Receipt Date: 20190807
  Transmission Date: 20191004
  Serious: Yes (Other)
  Sender: FDA-Public Use
  Company Number: IN-PFIZER INC-2019322874

PATIENT
  Age: 59 Year
  Sex: Female

DRUGS (1)
  1. AROMASIN [Suspect]
     Active Substance: EXEMESTANE
     Indication: BREAST CANCER
     Dosage: 25 MG, UNK
     Route: 048
     Dates: start: 20190709

REACTIONS (6)
  - Neoplasm progression [Unknown]
  - Diabetes mellitus [Unknown]
  - Pyrexia [Unknown]
  - Cough [Unknown]
  - Mouth ulceration [Unknown]
  - Decreased appetite [Unknown]
